FAERS Safety Report 4660530-4 (Version None)
Quarter: 2005Q2

REPORT INFORMATION
  Report Type: 
  Country: None (occurrence: None)
  Receive Date: 20050427
  Receipt Date: 20050311
  Transmission Date: 20051028
  Serious: No
  Sender: FDA-Public Use
  Company Number: 213054

PATIENT
  Sex: Female

DRUGS (7)
  1. XOLAIR [Suspect]
     Indication: ASTHMA
     Dosage: 300 MG, Q4W, UNK
     Route: 065
     Dates: start: 20031006
  2. ADVAIR (SALMETEROL XINAFOATE, FLUTICASONE PROPIONATE) [Concomitant]
  3. ZYRTEC [Concomitant]
  4. FLONASE [Concomitant]
  5. SINGULAIR [Concomitant]
  6. SYNTHROID [Concomitant]
  7. STEROIDS NOS (STEROID NOS) [Concomitant]

REACTIONS (3)
  - DRUG INEFFECTIVE [None]
  - DYSPNOEA [None]
  - WEIGHT DECREASED [None]
